FAERS Safety Report 11816589 (Version 1)
Quarter: 2015Q4

REPORT INFORMATION
  Report Type: Spontaneous
  Country: JP (occurrence: JP)
  Receive Date: 20151210
  Receipt Date: 20151210
  Transmission Date: 20160305
  Serious: Yes (Hospitalization)
  Sender: FDA-Public Use
  Company Number: JP-ACCORD-036016

PATIENT
  Age: 53 Year
  Sex: Female

DRUGS (4)
  1. DOCETAXEL. [Suspect]
     Active Substance: DOCETAXEL
     Indication: BREAST CANCER STAGE I
     Dosage: FOUR CYCLES OF DOCETAXEL
  2. EPIRUBICIN [Suspect]
     Active Substance: EPIRUBICIN
     Indication: BREAST CANCER STAGE I
     Dosage: FOUR CYCLES OF FEC EVERY 3 WEEKS
  3. CYCLOPHOSPHAMIDE/CYCLOPHOSPHAMIDE MONOHYDRATE [Suspect]
     Active Substance: CYCLOPHOSPHAMIDE
     Indication: BREAST CANCER STAGE I
     Dosage: FOUR CYCLES OF FEC EVERY 3 WEEKS
  4. FLUOROURACIL. [Suspect]
     Active Substance: FLUOROURACIL
     Indication: BREAST CANCER STAGE I
     Dosage: FOUR CYCLES OF FEC EVERY 3 WEEKS

REACTIONS (3)
  - Nausea [Unknown]
  - Miller Fisher syndrome [Recovering/Resolving]
  - Therapy responder [None]
